FAERS Safety Report 6736435-1 (Version None)
Quarter: 2010Q2

REPORT INFORMATION
  Report Type: 
  Country: None (occurrence: None)
  Receive Date: 20100521
  Receipt Date: 20100513
  Transmission Date: 20101027
  Serious: Yes (Other)
  Sender: FDA-Public Use
  Company Number: JP-MERCK-1005USA00915

PATIENT
  Age: 77 Year
  Sex: Female

DRUGS (2)
  1. FOSAMAX [Suspect]
     Route: 048
  2. DIDRONEL [Suspect]
     Route: 048

REACTIONS (1)
  - FEMUR FRACTURE [None]
